FAERS Safety Report 10724030 (Version 1)
Quarter: 2015Q1

REPORT INFORMATION
  Report Type: Spontaneous
  Country: US (occurrence: None)
  Receive Date: 20150116
  Receipt Date: 20150116
  Transmission Date: 20150721
  Serious: Yes (Disabling)
  Sender: FDA-Public Use
  Company Number: None

PATIENT
  Age: 27 Year
  Sex: Female
  Weight: 70.76 kg

DRUGS (1)
  1. BACTRIM DS [Suspect]
     Active Substance: SULFAMETHOXAZOLE\TRIMETHOPRIM
     Indication: PHARYNGITIS STREPTOCOCCAL
     Route: 048
     Dates: start: 20150113, end: 20150114

REACTIONS (5)
  - Pain in extremity [None]
  - Hypersensitivity [None]
  - Dysstasia [None]
  - Paraesthesia [None]
  - Abasia [None]

NARRATIVE: CASE EVENT DATE: 20150114
